FAERS Safety Report 11227386 (Version 1)
Quarter: 2015Q2

REPORT INFORMATION
  Report Type: Spontaneous
  Country: US (occurrence: US)
  Receive Date: 20150630
  Receipt Date: 20150630
  Transmission Date: 20150821
  Serious: Yes (Hospitalization)
  Sender: FDA-Public Use
  Company Number: US-ASTRAZENECA-2015SE61953

PATIENT
  Sex: Male
  Weight: 95.3 kg

DRUGS (6)
  1. PRILOSEC [Suspect]
     Active Substance: OMEPRAZOLE MAGNESIUM
     Indication: OESOPHAGEAL STENOSIS
     Route: 048
  2. DIOVIAN [Concomitant]
     Indication: HYPERTENSION
  3. PRILOSEC [Suspect]
     Active Substance: OMEPRAZOLE MAGNESIUM
     Indication: ABDOMINAL DISCOMFORT
     Route: 048
  4. PRILOSEC [Suspect]
     Active Substance: OMEPRAZOLE MAGNESIUM
     Indication: ABDOMINAL DISCOMFORT
     Dosage: GENERIC PRILOSEC
     Route: 065
  5. GLUCOVANCE [Concomitant]
     Active Substance: GLYBURIDE\METFORMIN HYDROCHLORIDE
     Indication: DIABETES MELLITUS
     Dosage: TWO TIMES A DAY
  6. PRILOSEC [Suspect]
     Active Substance: OMEPRAZOLE MAGNESIUM
     Indication: OESOPHAGEAL STENOSIS
     Dosage: GENERIC PRILOSEC
     Route: 065

REACTIONS (9)
  - Cardiac disorder [Unknown]
  - Diarrhoea [Unknown]
  - Gastric disorder [Unknown]
  - Muscle spasms [Unknown]
  - Dyspepsia [Unknown]
  - Vomiting [Unknown]
  - Product use issue [Unknown]
  - Feeding disorder [Unknown]
  - Diabetes mellitus [Unknown]
